FAERS Safety Report 10183273 (Version 2)
Quarter: 2014Q3

REPORT INFORMATION
  Report Type: Spontaneous
  Country: US (occurrence: US)
  Receive Date: 20140520
  Receipt Date: 20140718
  Transmission Date: 20150326
  Serious: No
  Sender: FDA-Public Use
  Company Number: US-JNJFOC-20140504708

PATIENT
  Age: 55 Year
  Sex: Male
  Weight: 119.3 kg

DRUGS (1)
  1. DURAGESIC [Suspect]
     Active Substance: FENTANYL
     Indication: SPINAL COLUMN INJURY
     Route: 062
     Dates: start: 201404

REACTIONS (9)
  - Wrong technique in drug usage process [Unknown]
  - Adverse event [Unknown]
  - Drug dose omission [Unknown]
  - Wrong technique in drug usage process [Unknown]
  - Speech disorder [Unknown]
  - Product quality issue [Unknown]
  - Product quality issue [Not Recovered/Not Resolved]
  - Product quality issue [Unknown]
  - Product adhesion issue [Unknown]

NARRATIVE: CASE EVENT DATE: 201404
